FAERS Safety Report 7549766-2 (Version None)
Quarter: 2011Q2

REPORT INFORMATION
  Report Type: 
  Country: None (occurrence: None)
  Receive Date: 20110615
  Receipt Date: 20070104
  Transmission Date: 20111010
  Serious: Yes (Hospitalization, Other)
  Sender: FDA-Public Use
  Company Number: PHFR2006GB02705

PATIENT
  Sex: Female

DRUGS (9)
  1. METHYLPREDNISOLONE [Concomitant]
     Route: 065
  2. DIAZEPAM [Concomitant]
     Indication: ANXIETY
     Dosage: 2MG/DAY
     Route: 048
  3. FLUOXETINE HCL [Concomitant]
     Indication: DEPRESSION
     Dosage: 40MG/DAY
     Route: 048
  4. ACETAMINOPHEN AND CODEINE PHOSPHATE [Concomitant]
     Indication: ARTHRITIS
     Dosage: 8 TABS
     Route: 048
  5. PROCYCLIDINE HYDROCHLORIDE 2MG TAB [Concomitant]
     Indication: EXTRAPYRAMIDAL DISORDER
     Dosage: 5MG/DAY
     Route: 048
  6. CLOZAPINE [Suspect]
     Indication: SCHIZOPHRENIA
     Dosage: 300MG/DAY
     Route: 048
     Dates: start: 19950731
  7. RANITIDINE [Concomitant]
     Indication: DYSPEPSIA
     Dosage: 150MG/DAY
     Route: 048
  8. VALPROATE SODIUM [Concomitant]
     Indication: EMOTIONAL DISORDER
     Dosage: 1000MG/DAY
     Route: 048
  9. DEPAKOTE [Concomitant]
     Indication: MOOD ALTERED
     Dosage: 250
     Route: 048
     Dates: start: 20050525

REACTIONS (14)
  - ANISOCYTOSIS [None]
  - POLYCHROMASIA [None]
  - IMPAIRED FASTING GLUCOSE [None]
  - PLATELET DISORDER [None]
  - GAIT DISTURBANCE [None]
  - BLOOD TEST ABNORMAL [None]
  - ANAEMIA [None]
  - LETHARGY [None]
  - BLOOD CHOLESTEROL INCREASED [None]
  - PAIN [None]
  - MICROCYTOSIS [None]
  - FATIGUE [None]
  - DYSARTHRIA [None]
  - MULTIPLE SCLEROSIS [None]
